FAERS Safety Report 5661181-5 (Version None)
Quarter: 2008Q1

REPORT INFORMATION
  Report Type: 
  Country: None (occurrence: None)
  Receive Date: 20080306
  Receipt Date: 20080225
  Transmission Date: 20080703
  Serious: No
  Sender: FDA-Public Use
  Company Number: 2008-172582-NL

PATIENT
  Age: 35 Year
  Sex: Male

DRUGS (3)
  1. NANDROLONE DECANOATE [Suspect]
     Dosage: DF
  2. TESTOSTERONE [Concomitant]
  3. STANOZOLOL [Concomitant]

REACTIONS (7)
  - CHEST PAIN [None]
  - COUGH [None]
  - DRUG ABUSE [None]
  - DYSPNOEA [None]
  - HEPATIC NEOPLASM MALIGNANT [None]
  - PULMONARY EMBOLISM [None]
  - PYREXIA [None]
